FAERS Safety Report 16711849 (Version 2)
Quarter: 2019Q3

REPORT INFORMATION
  Report Type: Spontaneous
  Country: CA (occurrence: CA)
  Receive Date: 20190816
  Receipt Date: 20190822
  Transmission Date: 20191004
  Serious: Yes (Other)
  Sender: FDA-Public Use
  Company Number: CA-PFIZER INC-2019172470

PATIENT
  Age: 46 Year
  Sex: Female

DRUGS (11)
  1. PREDNISONE. [Concomitant]
     Active Substance: PREDNISONE
     Dosage: UNK
     Route: 065
  2. PENTASA [Concomitant]
     Active Substance: MESALAMINE
     Dosage: 4000 MG, DAILY
     Route: 065
  3. SALOFALK [MESALAZINE] [Concomitant]
     Active Substance: MESALAMINE
     Dosage: 1000 MG, DAILY
     Route: 065
  4. XELJANZ [Suspect]
     Active Substance: TOFACITINIB CITRATE
     Indication: COLITIS ULCERATIVE
     Dosage: 10 MG, 2X/DAY
     Route: 048
     Dates: start: 20190415, end: 2019
  5. VITAMIN D [COLECALCIFEROL] [Concomitant]
     Active Substance: CHOLECALCIFEROL
     Dosage: 2000 IU, UNK
     Route: 065
  6. VITAMIN C WITH ZINC [Concomitant]
     Active Substance: ASCORBIC ACID\ZINC
     Dosage: 500 MG AND 2 MG ZINC
     Route: 065
  7. CITALOPRAM [Concomitant]
     Active Substance: CITALOPRAM HYDROBROMIDE
     Dosage: UNK
     Route: 065
  8. XELJANZ [Suspect]
     Active Substance: TOFACITINIB CITRATE
     Dosage: 5 MG, 2X/DAY
     Route: 048
     Dates: start: 2019
  9. AUBAGIO [Concomitant]
     Active Substance: TERIFLUNOMIDE
     Indication: MULTIPLE SCLEROSIS
     Dosage: UNK
     Route: 065
  10. FERROUS GLUCONATE [Concomitant]
     Active Substance: FERROUS GLUCONATE
     Dosage: 105 MG, UNK
     Route: 065
  11. PROBIOTICS [Concomitant]
     Active Substance: PROBIOTICS NOS
     Dosage: UNK
     Route: 065

REACTIONS (18)
  - Rectal prolapse [Unknown]
  - Insomnia [Unknown]
  - Dysphonia [Unknown]
  - Alanine aminotransferase increased [Unknown]
  - Incontinence [Unknown]
  - Memory impairment [Unknown]
  - Sensation of foreign body [Unknown]
  - Dyspepsia [Unknown]
  - Productive cough [Unknown]
  - Hyperphagia [Unknown]
  - Acne [Unknown]
  - Menstruation irregular [Unknown]
  - Haematochezia [Unknown]
  - Abdominal distension [Unknown]
  - Fatigue [Unknown]
  - Headache [Unknown]
  - Weight increased [Unknown]
  - Frequent bowel movements [Unknown]

NARRATIVE: CASE EVENT DATE: 2019
